FAERS Safety Report 6370698-X (Version None)
Quarter: 2009Q3

REPORT INFORMATION
  Report Type: 
  Country: None (occurrence: None)
  Receive Date: 20090923
  Receipt Date: 20090213
  Transmission Date: 20100115
  Serious: Yes (Hospitalization)
  Sender: FDA-Public Use
  Company Number: US-ASTRAZENECA-2006UW27142

PATIENT
  Age: 39 Year
  Sex: Male
  Weight: 79.4 kg

DRUGS (7)
  1. SEROQUEL [Suspect]
     Indication: BIPOLAR I DISORDER
     Route: 048
     Dates: start: 20060601
  2. SEROQUEL [Suspect]
     Route: 048
     Dates: start: 20060601
  3. SEROQUEL [Suspect]
     Dosage: 50 - 75 MG HS
     Route: 048
  4. SEROQUEL [Suspect]
     Route: 048
  5. DEPAKOTE [Concomitant]
     Route: 048
  6. INDERAL [Concomitant]
  7. PROPRANOLOL [Concomitant]
     Route: 048

REACTIONS (6)
  - AGITATION [None]
  - INCORRECT DOSE ADMINISTERED [None]
  - MANIA [None]
  - SEDATION [None]
  - SOMNOLENCE [None]
  - WEIGHT INCREASED [None]
